FAERS Safety Report 23951051 (Version 1)
Quarter: 2024Q2

REPORT INFORMATION
  Report Type: Report from Study
  Country: US (occurrence: US)
  Receive Date: 20240607
  Receipt Date: 20240607
  Transmission Date: 20240715
  Serious: No
  Sender: FDA-Public Use
  Company Number: US-SPRINGWORKS THERAPEUTICS-SW-001495

PATIENT
  Age: 45 Year
  Sex: Female
  Weight: 92.971 kg

DRUGS (1)
  1. NIROGACESTAT [Suspect]
     Active Substance: NIROGACESTAT
     Indication: Product used for unknown indication
     Dosage: 150.0 MILLIGRAM, BID
     Route: 048
     Dates: start: 20240326

REACTIONS (6)
  - Thirst [Unknown]
  - Decreased appetite [Unknown]
  - Vision blurred [Unknown]
  - Haematuria [Unknown]
  - Diarrhoea [Unknown]
  - Rash [Unknown]

NARRATIVE: CASE EVENT DATE: 20240318
